FAERS Safety Report 12928372 (Version 2)
Quarter: 2016Q4

REPORT INFORMATION
  Report Type: Spontaneous
  Country: IT (occurrence: IT)
  Receive Date: 20161110
  Receipt Date: 20161122
  Transmission Date: 20170207
  Serious: Yes (Other)
  Sender: FDA-Public Use
  Company Number: IT-009507513-1611ITA003675

PATIENT
  Age: 42 Year
  Sex: Male

DRUGS (1)
  1. PERPHENAZINE. [Suspect]
     Active Substance: PERPHENAZINE
     Indication: DRUG ABUSE
     Dosage: 5 DOSE UNITS TOTAL
     Route: 048
     Dates: start: 20151223, end: 20151223

REACTIONS (2)
  - Drug abuse [Recovered/Resolved]
  - Aspartate aminotransferase decreased [Recovered/Resolved]

NARRATIVE: CASE EVENT DATE: 20151223
